FAERS Safety Report 4885660-3 (Version None)
Quarter: 2005Q4

REPORT INFORMATION
  Report Type: 
  Country: None (occurrence: None)
  Receive Date: 20051220
  Receipt Date: 20041221
  Transmission Date: 20060501
  Serious: Yes (Other)
  Sender: FDA-Public Use
  Company Number: HQWYE175523DEC04

PATIENT
  Age: 59 Year
  Sex: Female
  Weight: 71.28 kg

DRUGS (4)
  1. EFFEXOR XR [Suspect]
     Indication: DEPRESSION
     Dosage: SEE IMAGE
     Route: 048
     Dates: end: 20040101
  2. EFFEXOR XR [Suspect]
     Indication: DEPRESSION
     Dosage: SEE IMAGE
     Route: 048
     Dates: start: 20020101
  3. CENESTIN [Concomitant]
  4. SYNTHROID [Concomitant]

REACTIONS (9)
  - ABDOMINAL PAIN [None]
  - AMNESIA [None]
  - CHILLS [None]
  - CONVULSION [None]
  - DRUG WITHDRAWAL SYNDROME [None]
  - HEADACHE [None]
  - NARCOLEPSY [None]
  - NAUSEA [None]
  - TREMOR [None]
